FAERS Safety Report 11743837 (Version 1)
Quarter: 2015Q4

REPORT INFORMATION
  Report Type: Spontaneous
  Country: JP (occurrence: JP)
  Receive Date: 20151116
  Receipt Date: 20151116
  Transmission Date: 20160304
  Serious: Yes (Death)
  Sender: FDA-Public Use
  Company Number: JP-MALLINCKRODT-T201505214

PATIENT
  Age: 57 Year
  Sex: Male

DRUGS (12)
  1. OXYFAST [Concomitant]
     Active Substance: OXYCODONE
     Indication: ANALGESIC THERAPY
     Dosage: 0.75 MG, PRN
     Route: 051
     Dates: start: 20140502, end: 20140506
  2. VERAPAMIL HCL [Concomitant]
     Active Substance: VERAPAMIL HYDROCHLORIDE
     Indication: ANALGESIC THERAPY
     Dosage: 4 MG PRN
     Route: 051
     Dates: start: 20140507
  3. YODEL [Concomitant]
     Active Substance: SENNA LEAF
     Dosage: 640 MG
     Route: 048
     Dates: end: 20140514
  4. LANSOPRAZOLE. [Concomitant]
     Active Substance: LANSOPRAZOLE
     Dosage: 15 MG
     Route: 048
     Dates: end: 20140514
  5. METHADONE [Suspect]
     Active Substance: METHADONE HYDROCHLORIDE
     Dosage: 20 MG DAILY DOSE
     Route: 048
     Dates: start: 20140501, end: 20140514
  6. SEROQUEL [Concomitant]
     Active Substance: QUETIAPINE FUMARATE
     Dosage: 25 MG
     Route: 048
     Dates: end: 20140514
  7. CERCINE [Concomitant]
     Active Substance: DIAZEPAM
     Dosage: 1 MG
     Route: 048
     Dates: start: 20140429, end: 20140514
  8. LYRICA [Concomitant]
     Active Substance: PREGABALIN
     Indication: ANALGESIC THERAPY
     Dosage: 75 MG
     Route: 048
     Dates: start: 20140510, end: 20140514
  9. AMITIZA [Concomitant]
     Active Substance: LUBIPROSTONE
     Dosage: 48 MG
     Route: 048
     Dates: end: 20140514
  10. VITAMEDIN [Concomitant]
     Active Substance: CYANOCOBALAMIN\PYRIDOXINE HYDROCHLORIDE\THIAMINE
     Dosage: 75 MG
     Route: 048
     Dates: start: 20140430, end: 20140514
  11. METHADONE [Suspect]
     Active Substance: METHADONE HYDROCHLORIDE
     Indication: PRODUCT USED FOR UNKNOWN INDICATION
     Dosage: 5 MG (15 MG DAILY DOSE)
     Route: 048
     Dates: start: 20140430, end: 20140430
  12. VOLTAREN [Concomitant]
     Active Substance: DICLOFENAC SODIUM
     Indication: ANALGESIC THERAPY
     Dosage: 37.5 MG
     Route: 048
     Dates: end: 20140514

REACTIONS (1)
  - Prostate cancer [Fatal]
